FAERS Safety Report 4708645-6 (Version None)
Quarter: 2005Q3

REPORT INFORMATION
  Report Type: 
  Country: None (occurrence: None)
  Receive Date: 20050706
  Receipt Date: 20050621
  Transmission Date: 20060218
  Serious: Yes (Hospitalization)
  Sender: FDA-Public Use
  Company Number: 2005BI007524

PATIENT
  Age: 78 Year
  Sex: Male
  Weight: 80.2867 kg

DRUGS (1)
  1. AVONEX [Suspect]
     Indication: MULTIPLE SCLEROSIS
     Dosage: 30 UG; QW; IM
     Route: 030
     Dates: start: 20030101, end: 20050405

REACTIONS (8)
  - CHEST X-RAY ABNORMAL [None]
  - DISEASE PROGRESSION [None]
  - DYSARTHRIA [None]
  - DYSPHAGIA [None]
  - DYSPNOEA [None]
  - KIDNEY INFECTION [None]
  - MYOCARDIAL INFARCTION [None]
  - TREMOR [None]
